FAERS Safety Report 8652379 (Version 2)
Quarter: 2012Q4

REPORT INFORMATION
  Report Type: 
  Country: AU (occurrence: AU)
  Receive Date: 20120706
  Receipt Date: 20120924
  Transmission Date: 20130627
  Serious: Yes (Other)
  Sender: FDA-Public Use
  Company Number: AU-ROCHE-1083914

PATIENT
  Age: 90 None
  Sex: Male

DRUGS (4)
  1. LUCENTIS [Suspect]
     Indication: AGE-RELATED MACULAR DEGENERATION
     Route: 050
     Dates: start: 2008
  2. LUCENTIS [Suspect]
     Route: 050
     Dates: start: 20120615
  3. BETADINE [Suspect]
     Indication: PRODUCT USED FOR UNKNOWN INDICATION
  4. FOSAMAX [Concomitant]
     Indication: OSTEITIS DEFORMANS
     Route: 065
     Dates: start: 201205

REACTIONS (5)
  - Chest pain [Recovering/Resolving]
  - Throat irritation [Recovering/Resolving]
  - Fluid retention [Recovering/Resolving]
  - Weight decreased [Recovering/Resolving]
  - Malaise [Recovering/Resolving]
